FAERS Safety Report 6414829-1 (Version None)
Quarter: 2009Q4

REPORT INFORMATION
  Report Type: 
  Country: None (occurrence: None)
  Receive Date: 20091026
  Receipt Date: 20091026
  Transmission Date: 20100525
  Serious: No
  Sender: FDA-Public Use
  Company Number: None

PATIENT
  Age: 35 Year
  Sex: Female
  Weight: 54.4316 kg

DRUGS (1)
  1. METHADONE [Suspect]
     Indication: PAIN
     Dosage: 512ML
     Dates: start: 20090307, end: 20090314

REACTIONS (1)
  - DEATH [None]
